FAERS Safety Report 22541050 (Version 1)
Quarter: 2023Q2

REPORT INFORMATION
  Report Type: Spontaneous
  Country: PL (occurrence: PL)
  Receive Date: 20230609
  Receipt Date: 20230609
  Transmission Date: 20230721
  Serious: Yes (Other)
  Sender: FDA-Public Use
  Company Number: PL-AMGEN-POLSP2023090629

PATIENT
  Age: 67 Year
  Sex: Male

DRUGS (8)
  1. IRINOTECAN HYDROCHLORIDE [Suspect]
     Active Substance: IRINOTECAN HYDROCHLORIDE
     Indication: Colorectal cancer metastatic
     Dosage: FREQ:2 WK;180 MILLIGRAM/SQ. METER, Q2WK, ON DAY 1 AND DAY 2
     Route: 065
     Dates: start: 2021
  2. VECTIBIX [Suspect]
     Active Substance: PANITUMUMAB
     Indication: Colorectal cancer metastatic
     Dosage: FREQ:2 WK;UNK, Q2WK
     Route: 065
     Dates: start: 2021
  3. VECTIBIX [Suspect]
     Active Substance: PANITUMUMAB
     Dosage: UNK UNK, Q2WK, (60% OF FULL DOSE)
     Route: 065
  4. VECTIBIX [Suspect]
     Active Substance: PANITUMUMAB
     Dosage: UNK UNK, Q2WK (DE-ESCALATION)
     Route: 065
  5. LEUCOVORIN [Suspect]
     Active Substance: LEUCOVORIN
     Indication: Colorectal cancer metastatic
     Dosage: FREQ:2 WK;200 MILLIGRAM/SQ. METER, Q2WK, ON DAY 1 AND DAY 2
     Route: 065
     Dates: start: 2021
  6. FLUOROURACIL [Suspect]
     Active Substance: FLUOROURACIL
     Indication: Colorectal cancer metastatic
     Dosage: FREQ:2 WK;400 MILLIGRAM/SQ. METER, Q2WK, ON DAY 1 AND DAY 2
     Route: 065
     Dates: start: 2021
  7. FLUOROURACIL [Suspect]
     Active Substance: FLUOROURACIL
     Dosage: FREQ:2 WK;600 MILLIGRAM/SQ. METER, Q2WK, 22-HOUR INFUSION ON DAY 1 AND DAY 2
     Route: 065
     Dates: start: 2021
  8. NEBIVOLOL [Concomitant]
     Active Substance: NEBIVOLOL
     Dosage: UNK

REACTIONS (2)
  - Neutropenia [Unknown]
  - Skin toxicity [Unknown]
